FAERS Safety Report 9171203 (Version 1)
Quarter: 2013Q1

REPORT INFORMATION
  Report Type: Spontaneous
  Country: US (occurrence: None)
  Receive Date: 20130318
  Receipt Date: 20130318
  Transmission Date: 20140127
  Serious: No
  Sender: FDA-Public Use
  Company Number: None

PATIENT
  Age: 63 Year
  Sex: Female
  Weight: 83.46 kg

DRUGS (1)
  1. MONTELUKAST [Suspect]
     Dosage: 90 TABLETS, 1XDAY, 10.4 MG MONTELUKAST SODIUM
     Dates: start: 201209, end: 201210

REACTIONS (2)
  - Vision blurred [None]
  - Dizziness [None]
